FAERS Safety Report 13225402 (Version 3)
Quarter: 2018Q1

REPORT INFORMATION
  Report Type: Report from Study
  Country: None (occurrence: PR)
  Receive Date: 20170213
  Receipt Date: 20180207
  Transmission Date: 20180508
  Serious: Yes (Hospitalization, Other)
  Sender: FDA-Public Use
  Company Number: PR-ABBVIE-16K-131-1759701-00

PATIENT
  Sex: Male
  Weight: 68.1 kg

DRUGS (3)
  1. INTESTINEX [Concomitant]
     Indication: CROHN^S DISEASE
     Route: 047
  2. HUMIRA [Suspect]
     Active Substance: ADALIMUMAB
     Indication: CROHN^S DISEASE
     Route: 058
     Dates: start: 201510, end: 20161013
  3. HUMIRA [Suspect]
     Active Substance: ADALIMUMAB
     Route: 058
     Dates: start: 2016, end: 201707

REACTIONS (8)
  - Fatigue [Unknown]
  - Drug dose omission [Recovered/Resolved]
  - Anal abscess [Recovering/Resolving]
  - Crohn^s disease [Unknown]
  - Wrong technique in product usage process [Recovered/Resolved]
  - Mental disorder [Unknown]
  - Gastrointestinal fistula [Unknown]
  - Anxiety [Not Recovered/Not Resolved]

NARRATIVE: CASE EVENT DATE: 2016
